FAERS Safety Report 5702360-8 (Version None)
Quarter: 2008Q2

REPORT INFORMATION
  Report Type: 
  Country: None (occurrence: None)
  Receive Date: 20080411
  Receipt Date: 20080409
  Transmission Date: 20081010
  Serious: Yes (Other)
  Sender: FDA-Public Use
  Company Number: KR-BRISTOL-MYERS SQUIBB COMPANY-14142061

PATIENT
  Age: 13 Year
  Sex: Female

DRUGS (5)
  1. CISPLATIN [Suspect]
     Dosage: DOSE TAKEN AS 100MG/M SUP(2) EVERY 3-4 WEEKS
  2. DOXORUBICIN HCL [Suspect]
     Dosage: TOTAL DOSE OF 293 MG/M SUP(2).
  3. CYCLOPHOSPHAMIDE [Suspect]
     Indication: BONE SARCOMA
  4. BLEOMYCIN SULFATE [Suspect]
  5. DACTINOMYCIN [Suspect]

REACTIONS (2)
  - CONGESTIVE CARDIOMYOPATHY [None]
  - THYROID CANCER [None]
